FAERS Safety Report 10376979 (Version 2)
Quarter: 2014Q3

REPORT INFORMATION
  Report Type: Spontaneous
  Country: CA (occurrence: CA)
  Receive Date: 20140812
  Receipt Date: 20140812
  Transmission Date: 20150326
  Serious: Yes (Other)
  Sender: FDA-Public Use
  Company Number: CA-AMGEN-CANSP2014058923

PATIENT
  Age: 48 Year
  Sex: Female

DRUGS (2)
  1. PREDNISONE. [Concomitant]
     Active Substance: PREDNISONE
     Indication: BURSITIS
     Dosage: UNK, DOSE IS BEING PROGRESSIVELY LOWERED
     Route: 065
  2. ENBREL [Suspect]
     Active Substance: ETANERCEPT
     Indication: PSORIATIC ARTHROPATHY
     Dosage: 25 MG, UNK
     Route: 065
     Dates: start: 20051007

REACTIONS (10)
  - Bursitis [Unknown]
  - Hypersensitivity [Unknown]
  - Tooth infection [Recovered/Resolved]
  - Localised infection [Unknown]
  - Anaesthetic complication [Unknown]
  - Impaired healing [Unknown]
  - Pyrexia [Unknown]
  - Apoptosis [Unknown]
  - Carpal tunnel syndrome [Recovered/Resolved]
  - Tooth fracture [Not Recovered/Not Resolved]

NARRATIVE: CASE EVENT DATE: 201406
